FAERS Safety Report 7691789-7 (Version None)
Quarter: 2011Q3

REPORT INFORMATION
  Report Type: 
  Country: None (occurrence: None)
  Receive Date: 20110818
  Receipt Date: 20110804
  Transmission Date: 20111222
  Serious: Yes (Other)
  Sender: FDA-Public Use
  Company Number: US-ARROW GEN-2011-11482

PATIENT
  Sex: Female
  Weight: 87.528 kg

DRUGS (6)
  1. LISINOPRIL [Suspect]
     Dosage: 20 MG, DAILY
     Route: 048
     Dates: start: 20101001
  2. LOVASTATIN [Concomitant]
     Indication: BLOOD CHOLESTEROL
     Dosage: 10 MG, DAILY
     Route: 065
     Dates: start: 20100101
  3. CIMETIDINE [Concomitant]
     Indication: HIATUS HERNIA
     Dosage: DAILY IF NEEDED
     Route: 065
     Dates: start: 20060101
  4. LISINOPRIL [Suspect]
     Indication: BLOOD PRESSURE
     Dosage: 20 MG, DAILY
     Route: 048
     Dates: end: 20110518
  5. LISINOPRIL [Suspect]
     Dosage: 20 MG, DAILY
     Route: 048
  6. PERI-COLACE [Concomitant]
     Indication: PRODUCT USED FOR UNKNOWN INDICATION
     Dosage: WHEN NEEDED
     Route: 065

REACTIONS (9)
  - SUICIDAL IDEATION [None]
  - CHOKING SENSATION [None]
  - LACRIMATION INCREASED [None]
  - INSOMNIA [None]
  - DEPRESSION [None]
  - DYSPNOEA [None]
  - COUGH [None]
  - RHINORRHOEA [None]
  - RESPIRATORY TRACT INFECTION [None]
